FAERS Safety Report 4532005-4 (Version None)
Quarter: 2004Q4

REPORT INFORMATION
  Report Type: 
  Country: None (occurrence: None)
  Receive Date: 20041217
  Receipt Date: 20030218
  Transmission Date: 20050328
  Serious: No
  Sender: FDA-Public Use
  Company Number: F04200400314

PATIENT
  Age: 87 Year
  Sex: Female

DRUGS (6)
  1. PLAVIX [Suspect]
     Indication: ATRIAL FIBRILLATION
     Dosage: 300 MG ONCE/ 75 MG OD ORAL
     Route: 048
     Dates: start: 20030123, end: 20030123
  2. PLAVIX [Suspect]
     Indication: ATRIAL FIBRILLATION
     Dosage: 300 MG ONCE/ 75 MG OD ORAL
     Route: 048
     Dates: start: 20030124, end: 20030130
  3. ASPIRIN [Suspect]
     Indication: ATRIAL FIBRILLATION
     Dosage: 300 MG OD ORAL
     Route: 048
     Dates: start: 20030123, end: 20030130
  4. HEPARIN [Concomitant]
  5. PROPOFOL [Concomitant]
  6. MIDAZOLAM HCL [Concomitant]

REACTIONS (6)
  - ATRIAL FIBRILLATION [None]
  - DISEASE RECURRENCE [None]
  - DRUG INEFFECTIVE [None]
  - ENTEROCOLITIS INFECTIOUS [None]
  - INTRACARDIAC THROMBUS [None]
  - MALABSORPTION [None]
